FAERS Safety Report 24312503 (Version 2)
Quarter: 2024Q4

REPORT INFORMATION
  Report Type: Spontaneous
  Country: US (occurrence: US)
  Receive Date: 20240912
  Receipt Date: 20241111
  Transmission Date: 20250115
  Serious: No
  Sender: PFIZER
  Company Number: US-PFIZER INC-202400253253

PATIENT
  Age: 68 Year
  Sex: Female
  Weight: 72.12 kg

DRUGS (1)
  1. EUCRISA [Suspect]
     Active Substance: CRISABOROLE
     Indication: Skin irritation
     Dosage: UNK, 2X/DAY (APPLY A LAYER TO THE AFFECTED AREAS)
     Dates: start: 20240908

REACTIONS (7)
  - Skin burning sensation [Recovering/Resolving]
  - Periorbital swelling [Not Recovered/Not Resolved]
  - Circumoral swelling [Not Recovered/Not Resolved]
  - Off label use [Unknown]
  - Dermatitis [Unknown]
  - Asthenia [Unknown]
  - Pain [Unknown]

NARRATIVE: CASE EVENT DATE: 20240908
